FAERS Safety Report 5595610-2 (Version None)
Quarter: 2008Q1

REPORT INFORMATION
  Report Type: 
  Country: None (occurrence: None)
  Receive Date: 20080116
  Receipt Date: 20080116
  Transmission Date: 20080703
  Serious: Yes (Other)
  Sender: FDA-Public Use
  Company Number: None

PATIENT
  Sex: Female
  Weight: 67.1324 kg

DRUGS (4)
  1. FOSAMAX [Suspect]
     Indication: BASEDOW'S DISEASE
     Dosage: 70 MG Q SUNDAY
     Dates: start: 20010912, end: 20070901
  2. FOSAMAX [Suspect]
     Indication: HYPERTHYROIDISM
     Dosage: 70 MG Q SUNDAY
     Dates: start: 20010912, end: 20070901
  3. FOSAMAX [Suspect]
     Indication: MENOPAUSAL SYMPTOMS
     Dosage: 70 MG Q SUNDAY
     Dates: start: 20010912, end: 20070901
  4. FOSAMAX [Suspect]
     Indication: OSTEOPOROTIC FRACTURE
     Dosage: 70 MG Q SUNDAY
     Dates: start: 20010912, end: 20070901

REACTIONS (3)
  - ARTHRALGIA [None]
  - GAIT DISTURBANCE [None]
  - INSOMNIA [None]
